FAERS Safety Report 23801546 (Version 3)
Quarter: 2024Q2

REPORT INFORMATION
  Report Type: Report from Study
  Country: CO (occurrence: CO)
  Receive Date: 20240430
  Receipt Date: 20240614
  Transmission Date: 20240716
  Serious: Yes (Other)
  Sender: FDA-Public Use
  Company Number: CO-ABBVIE-5738623

PATIENT
  Sex: Female
  Weight: 76 kg

DRUGS (3)
  1. SKYRIZI [Suspect]
     Active Substance: RISANKIZUMAB-RZAA
     Indication: Psoriasis
     Dosage: FORM STRENGTH: 150 MILLIGRAM
     Route: 058
     Dates: start: 20231012, end: 20240210
  2. FLUCONAZOLE [Suspect]
     Active Substance: FLUCONAZOLE
     Indication: Cutaneous T-cell lymphoma
     Dosage: SINGLE DOSE
     Route: 048
     Dates: start: 20240425, end: 20240425
  3. GEMFIBROZIL [Concomitant]
     Active Substance: GEMFIBROZIL
     Indication: Blood triglycerides
     Dosage: NOT REPORTED
     Route: 048
     Dates: start: 20240425

REACTIONS (13)
  - Neoplasm skin [Unknown]
  - Macule [Unknown]
  - Skin cancer [Unknown]
  - Glucose tolerance impaired [Unknown]
  - Inflammation [Recovered/Resolved]
  - Blood triglycerides increased [Unknown]
  - Erythema [Unknown]
  - Cutaneous T-cell lymphoma [Unknown]
  - Drug ineffective [Unknown]
  - Skin hyperpigmentation [Unknown]
  - Morphoea [Not Recovered/Not Resolved]
  - Skin plaque [Unknown]
  - Skin exfoliation [Unknown]

NARRATIVE: CASE EVENT DATE: 20240101
